FAERS Safety Report 22931936 (Version 4)
Quarter: 2024Q1

REPORT INFORMATION
  Report Type: Report from Study
  Country: US (occurrence: US)
  Receive Date: 20230912
  Receipt Date: 20240215
  Transmission Date: 20240409
  Serious: Yes (Death, Hospitalization, Other)
  Sender: FDA-Public Use
  Company Number: US-ACADIA PHARMACEUTICALS INC.-ACA-2023-PIM-003606

PATIENT
  Age: 79 Year
  Sex: Female

DRUGS (14)
  1. NUPLAZID [Suspect]
     Active Substance: PIMAVANSERIN TARTRATE
     Indication: Parkinson^s disease psychosis
     Dosage: 34 MILLIGRAM, QD
     Route: 048
     Dates: start: 20230814
  2. NUPLAZID [Suspect]
     Active Substance: PIMAVANSERIN TARTRATE
     Indication: Hallucination
  3. NUPLAZID [Suspect]
     Active Substance: PIMAVANSERIN TARTRATE
     Indication: Delusion
  4. CELEBREX [Concomitant]
     Active Substance: CELECOXIB
     Dosage: 200 MILLIGRAM
  5. ATORVASTATIN [Concomitant]
     Active Substance: ATORVASTATIN
     Dosage: 10 MILLIGRAM
  6. CARBIDOPA LEVODOPA [Concomitant]
     Active Substance: CARBIDOPA\LEVODOPA
     Dosage: 25/100 MG, CR
  7. SINEMET [Concomitant]
     Active Substance: CARBIDOPA\LEVODOPA
     Dosage: CR 50/200 MG
  8. ENTACAPONE [Concomitant]
     Active Substance: ENTACAPONE
     Dosage: 200 MILLIGRAM
  9. CLONAZEPAM [Concomitant]
     Active Substance: CLONAZEPAM
     Dosage: 0.5 MG
  10. MIRTAZAPINE [Concomitant]
     Active Substance: MIRTAZAPINE
     Dosage: 7.5 MG
  11. INBRIJA [Concomitant]
     Active Substance: LEVODOPA
     Dosage: 42 MILLIGRAM
  12. RIVASTIGMINE [Concomitant]
     Active Substance: RIVASTIGMINE
     Dosage: 9.5 MG/24 HR DIS
  13. CYANOCOBALAMIN [Concomitant]
     Active Substance: CYANOCOBALAMIN
     Dosage: 1000 MICROGRAM
  14. ACETAMINOPHEN [Concomitant]
     Active Substance: ACETAMINOPHEN
     Dosage: 500 MILLIGRAM

REACTIONS (8)
  - Death [Fatal]
  - Fall [Recovered/Resolved]
  - COVID-19 [Recovering/Resolving]
  - Parkinson^s disease [Unknown]
  - Memory impairment [Unknown]
  - Arthralgia [Unknown]
  - Hallucination [Not Recovered/Not Resolved]
  - Hallucination [Unknown]

NARRATIVE: CASE EVENT DATE: 20230927
